FAERS Safety Report 9267230 (Version 1)
Quarter: 2013Q2

REPORT INFORMATION
  Report Type: Spontaneous
  Country: US (occurrence: US)
  Receive Date: 20130502
  Receipt Date: 20130502
  Transmission Date: 20140414
  Serious: Yes (Hospitalization, Congenital Anomaly, Other)
  Sender: FDA-Public Use
  Company Number: US-ABBOTT-13P-163-1080624-00

PATIENT
  Sex: Female

DRUGS (26)
  1. DEPAKOTE ER [Suspect]
     Indication: MATERNAL EXPOSURE TIMING UNSPECIFIED
     Route: 064
  2. DTAP [Concomitant]
     Indication: IMMUNISATION
     Dates: start: 20040304, end: 20040304
  3. DTAP [Concomitant]
     Dates: start: 20040512, end: 20040512
  4. DTAP [Concomitant]
     Dates: start: 20050510, end: 20050510
  5. DTAP [Concomitant]
     Dates: start: 20071205, end: 20071205
  6. HEPATITIS A VACCINE [Concomitant]
     Indication: IMMUNISATION
     Dates: start: 20050916, end: 20050916
  7. HEPATITIS A VACCINE [Concomitant]
     Dates: start: 20061031, end: 20061031
  8. HEPATITIS B VACCINE [Concomitant]
     Indication: IMMUNISATION
     Dates: start: 20031009, end: 20031009
  9. HEPATITIS B VACCINE [Concomitant]
     Dates: start: 20040802, end: 20040802
  10. HIB [Concomitant]
     Indication: IMMUNISATION
     Dates: start: 20040304, end: 20040304
  11. HIB [Concomitant]
     Dates: start: 20040512, end: 20040512
  12. COMVAX [Concomitant]
     Indication: IMMUNISATION
     Dates: start: 20050510, end: 20050510
  13. IPV [Concomitant]
     Indication: IMMUNISATION
     Dates: start: 20040304, end: 20040304
  14. IPV [Concomitant]
     Dates: start: 20040512, end: 20040512
  15. IPV [Concomitant]
     Dates: start: 20071205, end: 20071205
  16. INFLUENZA VACCINE INACTIVATED [Concomitant]
     Indication: IMMUNISATION
     Dates: start: 20041019, end: 20041019
  17. INFLUENZA VACCINE INACTIVATED [Concomitant]
     Dates: start: 20071205, end: 20071205
  18. INFLUENZA VACCINE INACTIVATED [Concomitant]
     Dates: start: 20090901, end: 20090901
  19. MMR [Concomitant]
     Indication: IMMUNISATION
     Dates: start: 20041019, end: 20041019
  20. MMR [Concomitant]
     Dates: start: 20050916, end: 20050916
  21. PREVNAR [Concomitant]
     Indication: IMMUNISATION
     Dates: start: 20040304, end: 20040304
  22. PREVNAR [Concomitant]
     Dates: start: 20040512, end: 20040512
  23. PREVNAR [Concomitant]
     Dates: start: 20050510, end: 20050510
  24. PREVNAR [Concomitant]
     Dates: start: 20061031, end: 20061031
  25. VARICELLA ZOSTER VACCINE [Concomitant]
     Indication: IMMUNISATION
     Dates: start: 20041019, end: 20041019
  26. VARICELLA ZOSTER VACCINE [Concomitant]
     Dates: start: 20071205, end: 20071205

REACTIONS (47)
  - Joint contracture [Unknown]
  - Spina bifida [Unknown]
  - Congenital hydrocephalus [Unknown]
  - Arnold-Chiari malformation [Unknown]
  - Arachnoid cyst [Unknown]
  - Neurogenic bladder [Unknown]
  - Developmental delay [Unknown]
  - Dehydration [Unknown]
  - Hypopnoea [Unknown]
  - Gastrooesophageal reflux disease [Unknown]
  - Feeding disorder of infancy or early childhood [Unknown]
  - Rubber sensitivity [Unknown]
  - Activities of daily living impaired [Unknown]
  - Platybasia [Unknown]
  - Pyelonephritis [Unknown]
  - Tonsillar hypertrophy [Unknown]
  - Nasal obstruction [Unknown]
  - Sleep disorder [Unknown]
  - Foetal exposure during pregnancy [Unknown]
  - Pyrexia [Unknown]
  - Ear pain [Unknown]
  - Respiratory tract congestion [Unknown]
  - Cough [Unknown]
  - Erythema infectiosum [Unknown]
  - Viral infection [Unknown]
  - Dysarthria [Unknown]
  - Vomiting [Unknown]
  - Constipation [Unknown]
  - Headache [Unknown]
  - Neck pain [Unknown]
  - Upper respiratory tract infection [Unknown]
  - Escherichia urinary tract infection [Not Recovered/Not Resolved]
  - Hiccups [Unknown]
  - Cough [Unknown]
  - Dyskinesia [Unknown]
  - Paraesthesia [Unknown]
  - Ear pain [Unknown]
  - Urinary tract infection pseudomonal [Unknown]
  - Hypotonia [Unknown]
  - Ear infection [Unknown]
  - Myelodysplastic syndrome [Unknown]
  - Intervertebral disc compression [Unknown]
  - Atrial septal defect [Unknown]
  - Patent ductus arteriosus [Unknown]
  - Sleep disorder [Unknown]
  - Adenoidal hypertrophy [Unknown]
  - Intervertebral disc calcification [Unknown]
